FAERS Safety Report 13839366 (Version 1)
Quarter: 2017Q3

REPORT INFORMATION
  Report Type: Spontaneous
  Country: US (occurrence: US)
  Receive Date: 20170805
  Receipt Date: 20170805
  Transmission Date: 20171127
  Serious: Yes (Hospitalization)
  Sender: FDA-Public Use
  Company Number: None

PATIENT
  Age: 71 Year
  Sex: Male

DRUGS (10)
  1. CARBOPLATIN. [Suspect]
     Active Substance: CARBOPLATIN
     Indication: NON-SMALL CELL LUNG CANCER
     Route: 042
     Dates: start: 20170418
  2. LISINOPRIL/HCTZ [Concomitant]
     Active Substance: HYDROCHLOROTHIAZIDE\LISINOPRIL
  3. OMEPRAZOLE. [Concomitant]
     Active Substance: OMEPRAZOLE
  4. PACLITAXEL. [Concomitant]
     Active Substance: PACLITAXEL
  5. CALCIUM + VITAMIN D [Concomitant]
     Active Substance: CALCIUM\VITAMIN D
  6. ALLOPURINOL. [Concomitant]
     Active Substance: ALLOPURINOL
  7. ONDANSETRON [Concomitant]
     Active Substance: ONDANSETRON
  8. MULTIVITAMIN [Concomitant]
     Active Substance: VITAMINS
  9. POTASSIUM CHLORIDE. [Concomitant]
     Active Substance: POTASSIUM CHLORIDE
  10. SUCRALFATE. [Concomitant]
     Active Substance: SUCRALFATE

REACTIONS (8)
  - Asthenia [None]
  - Muscle twitching [None]
  - Diarrhoea [None]
  - Paraesthesia [None]
  - Malaise [None]
  - Fatigue [None]
  - Dyspepsia [None]
  - Muscle contracture [None]

NARRATIVE: CASE EVENT DATE: 20170522
